FAERS Safety Report 8487371 (Version 2)
Quarter: 2012Q4

REPORT INFORMATION
  Report Type: 
  Country: US (occurrence: US)
  Receive Date: 20120402
  Receipt Date: 20121001
  Transmission Date: 20130627
  Serious: Yes (Other)
  Sender: FDA-Public Use
  Company Number: US-SANOFI-AVENTIS-2012SA020276

PATIENT
  Age: 35 Year
  Sex: Female

DRUGS (4)
  1. ALLEGRA-D 24 HOUR [Suspect]
     Indication: ALLERGY
     Route: 048
  2. ALLEGRA-D [Suspect]
     Indication: ALLERGY MULTIPLE
     Dates: start: 2003
  3. ZYRTEC [Concomitant]
  4. CLARITIN [Concomitant]

REACTIONS (5)
  - Pneumonia [Unknown]
  - Bronchitis [Unknown]
  - Malaise [Unknown]
  - Drug ineffective [Unknown]
  - Insomnia [Unknown]
